FAERS Safety Report 5590248-5 (Version None)
Quarter: 2008Q1

REPORT INFORMATION
  Report Type: 
  Country: None (occurrence: None)
  Receive Date: 20080114
  Receipt Date: 20080104
  Transmission Date: 20080703
  Serious: Yes (Hospitalization)
  Sender: FDA-Public Use
  Company Number: NO-ASTRAZENECA-2007SE06352

PATIENT
  Age: 9832 Day
  Sex: Male

DRUGS (6)
  1. NAROPIN [Suspect]
     Indication: POSTOPERATIVE ANALGESIA
     Route: 059
     Dates: start: 20071102, end: 20071102
  2. REMIFENTANIL [Concomitant]
     Indication: ANAESTHESIA
     Route: 042
     Dates: start: 20071102, end: 20071102
  3. FENTANYL [Concomitant]
     Indication: ANAESTHESIA
     Route: 042
     Dates: start: 20071102, end: 20071102
  4. DEXAMETHASONE TAB [Concomitant]
     Route: 042
     Dates: start: 20071102, end: 20071102
  5. PROPOFOL [Concomitant]
     Indication: ANAESTHESIA
     Route: 042
     Dates: start: 20071102, end: 20071102
  6. TORADOL [Concomitant]
     Route: 042
     Dates: start: 20071102, end: 20071102

REACTIONS (4)
  - CONVULSION [None]
  - DIZZINESS [None]
  - PARAESTHESIA [None]
  - PERIPHERAL COLDNESS [None]
